FAERS Safety Report 16868252 (Version 1)
Quarter: 2019Q4

REPORT INFORMATION
  Report Type: Spontaneous
  Country: US (occurrence: US)
  Receive Date: 20190930
  Receipt Date: 20190930
  Transmission Date: 20200122
  Serious: No
  Sender: FDA-Public Use
  Company Number: None

PATIENT
  Age: 41 Year
  Sex: Female
  Weight: 66.6 kg

DRUGS (1)
  1. NP THYROID [Suspect]
     Active Substance: LEVOTHYROXINE\LIOTHYRONINE
     Indication: AUTOIMMUNE THYROIDITIS
     Dosage: ?          QUANTITY:1 TABLET(S);?
     Route: 048
     Dates: start: 20190728, end: 20190831

REACTIONS (7)
  - Product odour abnormal [None]
  - Hypothyroidism [None]
  - Palpitations [None]
  - Product commingling [None]
  - Drug ineffective [None]
  - Headache [None]
  - Symptom recurrence [None]

NARRATIVE: CASE EVENT DATE: 20190830
